FAERS Safety Report 19803775 (Version 2)
Quarter: 2021Q3

REPORT INFORMATION
  Report Type: Report from Study
  Country: TR (occurrence: TR)
  Receive Date: 20210908
  Receipt Date: 20210910
  Transmission Date: 20211014
  Serious: Yes (Hospitalization)
  Sender: FDA-Public Use
  Company Number: TR-EISAI MEDICAL RESEARCH-EC-2021-099094

PATIENT
  Age: 63 Year
  Sex: Female
  Weight: 89.7 kg

DRUGS (17)
  1. DESYREL [Concomitant]
     Active Substance: TRAZODONE HYDROCHLORIDE
     Dates: start: 201701
  2. NEXIUM [Concomitant]
     Active Substance: ESOMEPRAZOLE MAGNESIUM
     Dates: start: 202001
  3. DIKLORON [Concomitant]
     Active Substance: DICLOFENAC SODIUM
     Dates: start: 202101
  4. METPAMID [Concomitant]
     Active Substance: METOCLOPRAMIDE
     Dates: start: 202101
  5. MAGVITAL [Concomitant]
     Dates: start: 20210629
  6. LENVATINIB [Suspect]
     Active Substance: LENVATINIB
     Route: 048
     Dates: start: 20210702, end: 20210705
  7. TRAJENTA [Concomitant]
     Active Substance: LINAGLIPTIN
     Dates: start: 201601
  8. PEMBROLIZUMAB. [Suspect]
     Active Substance: PEMBROLIZUMAB
     Indication: COLORECTAL CANCER
     Route: 041
     Dates: start: 20210622, end: 20210622
  9. LENVATINIB [Suspect]
     Active Substance: LENVATINIB
     Dosage: FLUCTUATED DOSAGE
     Route: 048
     Dates: start: 20210706
  10. PEMBROLIZUMAB. [Suspect]
     Active Substance: PEMBROLIZUMAB
     Route: 041
     Dates: start: 20210803
  11. LEVOTIRON [Concomitant]
     Active Substance: LEVOTHYROXINE SODIUM
     Dates: start: 198601
  12. EFEXOR [Concomitant]
     Active Substance: VENLAFAXINE HYDROCHLORIDE
     Dates: start: 199801
  13. LENVATINIB [Suspect]
     Active Substance: LENVATINIB
     Indication: COLORECTAL CANCER
     Route: 048
     Dates: start: 20210622, end: 20210628
  14. MINOSET [Concomitant]
     Active Substance: ACETAMINOPHEN
     Dates: start: 202101
  15. KAPTORIL [Concomitant]
     Dates: start: 20210629
  16. ARBESTA [Concomitant]
     Dates: start: 198601, end: 20210627
  17. TRIPLIXAM [Concomitant]
     Active Substance: AMLODIPINE BESYLATE\INDAPAMIDE\PERINDOPRIL ARGININE
     Dates: start: 20210629

REACTIONS (1)
  - Stomatitis [Not Recovered/Not Resolved]

NARRATIVE: CASE EVENT DATE: 20210702
